FAERS Safety Report 9383503 (Version 1)
Quarter: 2013Q3

REPORT INFORMATION
  Report Type: Spontaneous
  Country: AU (occurrence: AU)
  Receive Date: 20130704
  Receipt Date: 20130704
  Transmission Date: 20140515
  Serious: Yes (Hospitalization, Disabling, Other)
  Sender: FDA-Public Use
  Company Number: AU-009507513-1305AUS003357

PATIENT
  Age: 49 Year
  Sex: Female

DRUGS (13)
  1. PEGATRON [Suspect]
     Indication: HEPATITIS C
     Dosage: 150 MICROGRAM,QW
     Dates: start: 20130125, end: 20130403
  2. PEGATRON [Suspect]
     Dosage: 100 MICROGRAM, QW
     Route: 058
     Dates: start: 20130403, end: 20130504
  3. RIBAVIRIN [Suspect]
     Dosage: 1000 MG
     Dates: start: 20130403, end: 20130504
  4. CELEBREX [Concomitant]
     Indication: BACK PAIN
     Dosage: 200 MG, QD
     Route: 048
  5. ENDEP [Concomitant]
     Indication: DEPRESSION
     Dosage: 50 MG, 4 NOCTA
     Route: 048
  6. FUROSEMIDE [Concomitant]
     Indication: JOINT SWELLING
     Dosage: 40 MG, 2 MANE 1 AT LUNCH TIME
     Route: 048
  7. OMEPRAZOLE [Concomitant]
     Indication: GASTROOESOPHAGEAL REFLUX DISEASE
     Dosage: 20 MG,1 MANE
     Route: 048
  8. SAPHRIS [Concomitant]
     Indication: BIPOLAR DISORDER
     Dosage: 10 MG, HS
     Route: 060
  9. SERETIDE [Concomitant]
     Indication: ASTHMA
     Dosage: 2 DF, BID
     Route: 055
  10. SLOW-K [Concomitant]
     Indication: JOINT SWELLING
     Dosage: 600 MG, QD
     Route: 048
  11. SPIRIVA [Concomitant]
     Indication: CHRONIC OBSTRUCTIVE PULMONARY DISEASE
     Dosage: 18 MICROGRAM, UNK
     Route: 055
  12. SUBOXONE [Concomitant]
     Indication: DRUG DEPENDENCE
     Dosage: 16 MG PICK UP EVERY SECOND DAY FROM PHARMACY, 2 TAKE AWAYS A WEEK
     Route: 060
  13. VENTOLIN (ALBUTEROL SULFATE) [Concomitant]
     Indication: ASTHMA
     Dosage: 100 MICROGRAM, Q4H, 2PUFFS, PRN
     Route: 055

REACTIONS (1)
  - Pneumonia haemophilus [Not Recovered/Not Resolved]
